FAERS Safety Report 6133062-4 (Version None)
Quarter: 2009Q1

REPORT INFORMATION
  Report Type: 
  Country: None (occurrence: None)
  Receive Date: 20090326
  Receipt Date: 20090317
  Transmission Date: 20090719
  Serious: Yes (Hospitalization)
  Sender: FDA-Public Use
  Company Number: US-BIOGENIDEC-2009BI000501

PATIENT
  Age: 44 Year
  Sex: Female

DRUGS (1)
  1. AVONEX [Suspect]
     Indication: MULTIPLE SCLEROSIS
     Route: 030
     Dates: start: 20011101, end: 20090202

REACTIONS (18)
  - ADVERSE DRUG REACTION [None]
  - CATHETER SITE HAEMATOMA [None]
  - CONSTIPATION [None]
  - CORONARY ARTERY DISEASE [None]
  - DRUG WITHDRAWAL SYNDROME [None]
  - HEADACHE [None]
  - HYPOAESTHESIA [None]
  - HYSTEROSCOPY [None]
  - INTERVERTEBRAL DISC DEGENERATION [None]
  - LEFT ATRIAL DILATATION [None]
  - LOSS OF CONSCIOUSNESS [None]
  - MULTIPLE SCLEROSIS [None]
  - MUSCULAR WEAKNESS [None]
  - MYALGIA [None]
  - PAIN [None]
  - PARAESTHESIA [None]
  - STRESS [None]
  - VISION BLURRED [None]
